FAERS Safety Report 15332850 (Version 1)
Quarter: 2018Q3

REPORT INFORMATION
  Report Type: Report from Study
  Country: None (occurrence: GB)
  Receive Date: 20180830
  Receipt Date: 20180830
  Transmission Date: 20181010
  Serious: Yes (Other)
  Sender: FDA-Public Use
  Company Number: GB-ABBVIE-18S-167-2462323-00

PATIENT
  Sex: Female

DRUGS (1)
  1. DUODOPA [Suspect]
     Active Substance: CARBIDOPA\LEVODOPA
     Indication: PARKINSON^S DISEASE
     Dosage: 100ML, 1 CASSETTE, DAILY
     Route: 050

REACTIONS (5)
  - Breast cancer [Unknown]
  - Device physical property issue [Unknown]
  - Device occlusion [Unknown]
  - Constipation [Unknown]
  - On and off phenomenon [Unknown]
